FAERS Safety Report 17123430 (Version 2)
Quarter: 2020Q1

REPORT INFORMATION
  Report Type: Spontaneous
  Country: CN (occurrence: CN)
  Receive Date: 20191206
  Receipt Date: 20200110
  Transmission Date: 20200409
  Serious: Yes (Hospitalization, Other)
  Sender: FDA-Public Use
  Company Number: CN-GILEAD-2019-0441278

PATIENT
  Age: 50 Year
  Sex: Male

DRUGS (9)
  1. DEFERASIROX. [Suspect]
     Active Substance: DEFERASIROX
     Indication: SERUM FERRITIN INCREASED
     Dosage: UNK
     Route: 048
  2. ENTECAVIR. [Concomitant]
     Active Substance: ENTECAVIR
     Indication: HEPATITIS B
     Dosage: UNK
  3. ALBUMIN HUMAN SERUM [Concomitant]
     Active Substance: ALBUMIN HUMAN
     Dosage: UNK
  4. TOLVAPTAN [Concomitant]
     Active Substance: TOLVAPTAN
     Indication: ASCITES
     Dosage: UNK
  5. HEPSERA [Suspect]
     Active Substance: ADEFOVIR DIPIVOXIL
     Indication: HEPATITIS B
     Dosage: UNK
     Route: 065
  6. ADEMETIONINE 1,4-BUTANEDISULFONATE [Concomitant]
     Indication: CHOLESTASIS
     Dosage: UNK
  7. ALPROSTADIL. [Concomitant]
     Active Substance: ALPROSTADIL
     Indication: POOR PERIPHERAL CIRCULATION
     Dosage: UNK
  8. SPIRONOLACTONE. [Concomitant]
     Active Substance: SPIRONOLACTONE
     Indication: ELECTROLYTE IMBALANCE
     Dosage: UNK
  9. ALBUMIN HUMAN SERUM [Concomitant]
     Active Substance: ALBUMIN HUMAN
     Indication: PORTAL VEIN PRESSURE INCREASED
     Dosage: UNK

REACTIONS (1)
  - Acute kidney injury [Recovered/Resolved]

NARRATIVE: CASE EVENT DATE: 20181107
